FAERS Safety Report 18330528 (Version 1)
Quarter: 2020Q3

REPORT INFORMATION
  Report Type: Spontaneous
  Country: US (occurrence: US)
  Receive Date: 20200930
  Receipt Date: 20200930
  Transmission Date: 20201103
  Serious: Yes (Other)
  Sender: FDA-Public Use
  Company Number: NVSC2020US260360

PATIENT
  Sex: Male

DRUGS (15)
  1. METFORMIN [Suspect]
     Active Substance: METFORMIN HYDROCHLORIDE
     Dosage: 2000 QD (MATERNAL DOSE)
     Route: 064
  2. FUROSEMIDE. [Suspect]
     Active Substance: FUROSEMIDE
     Indication: CARDIAC FAILURE
  3. DIGOXIN. [Suspect]
     Active Substance: DIGOXIN
     Indication: CARDIAC FAILURE
  4. DIGOXIN. [Suspect]
     Active Substance: DIGOXIN
     Indication: PULMONARY HYPERTENSION
  5. FUROSEMIDE. [Suspect]
     Active Substance: FUROSEMIDE
     Indication: PULMONARY HYPERTENSION
  6. BECLOMETHASONE [Suspect]
     Active Substance: BECLOMETHASONE
     Indication: ALVEOLAR CAPILLARY DYSPLASIA
     Dosage: UNK
     Route: 065
  7. METFORMIN [Suspect]
     Active Substance: METFORMIN HYDROCHLORIDE
     Indication: FOETAL EXPOSURE DURING PREGNANCY
     Dosage: 1000 MG, QD (MATERNAL DOSE)
     Route: 064
  8. BOSENTAN. [Suspect]
     Active Substance: BOSENTAN
     Indication: ALVEOLAR CAPILLARY DYSPLASIA
     Dosage: UNK
     Route: 065
  9. DIGOXIN. [Suspect]
     Active Substance: DIGOXIN
     Indication: ALVEOLAR CAPILLARY DYSPLASIA
     Dosage: UNK
     Route: 065
  10. SILDENAFIL. [Suspect]
     Active Substance: SILDENAFIL
     Indication: ALVEOLAR CAPILLARY DYSPLASIA
     Dosage: UNK
     Route: 065
  11. CHLOROTHIAZIDE. [Suspect]
     Active Substance: CHLOROTHIAZIDE
     Indication: ALVEOLAR CAPILLARY DYSPLASIA
     Dosage: UNK
     Route: 065
  12. SPIRONOLACTONE. [Suspect]
     Active Substance: SPIRONOLACTONE
     Indication: ALVEOLAR CAPILLARY DYSPLASIA
     Dosage: UNK
     Route: 065
  13. ALBUTEROL. [Suspect]
     Active Substance: ALBUTEROL
     Indication: ALVEOLAR CAPILLARY DYSPLASIA
     Dosage: UNK
     Route: 065
  14. FUROSEMIDE. [Suspect]
     Active Substance: FUROSEMIDE
     Indication: ALVEOLAR CAPILLARY DYSPLASIA
     Dosage: UNK
     Route: 065
  15. ASPIRINE [Suspect]
     Active Substance: ASPIRIN
     Indication: ALVEOLAR CAPILLARY DYSPLASIA
     Dosage: UNK
     Route: 065

REACTIONS (3)
  - Pulmonary hypertension [Unknown]
  - Right ventricular failure [Recovered/Resolved]
  - Foetal exposure during pregnancy [Unknown]
